FAERS Safety Report 6000113-7 (Version None)
Quarter: 2008Q4

REPORT INFORMATION
  Report Type: 
  Country: None (occurrence: None)
  Receive Date: 20081211
  Receipt Date: 20080714
  Transmission Date: 20090506
  Serious: No
  Sender: FDA-Public Use
  Company Number: US023890

PATIENT
  Sex: Male
  Weight: 80.2867 kg

DRUGS (1)
  1. TREANDA [Suspect]
     Indication: NON-HODGKIN'S LYMPHOMA
     Dosage: 180 MG INTRAVENOUS
     Route: 042
     Dates: start: 20080617

REACTIONS (2)
  - INJECTION SITE IRRITATION [None]
  - INJECTION SITE PAIN [None]
